FAERS Safety Report 5940661-9 (Version None)
Quarter: 2008Q4

REPORT INFORMATION
  Report Type: 
  Country: None (occurrence: None)
  Receive Date: 20081103
  Receipt Date: 20081103
  Transmission Date: 20090506
  Serious: Yes (Other)
  Sender: FDA-Public Use
  Company Number: None

PATIENT
  Age: 61 Year
  Sex: Female
  Weight: 42.1845 kg

DRUGS (1)
  1. FOSAMAX PLUS D [Suspect]
     Indication: OSTEOPOROSIS
     Dosage: 1 TABLET ONCE A WEEK WEEKLY ORAL
     Route: 048
     Dates: start: 20051001, end: 20080601

REACTIONS (1)
  - ARTHRALGIA [None]
